FAERS Safety Report 18263952 (Version 2)
Quarter: 2020Q3

REPORT INFORMATION
  Report Type: Spontaneous
  Country: US (occurrence: US)
  Receive Date: 20200914
  Receipt Date: 20200917
  Transmission Date: 20201103
  Serious: Yes (Other)
  Sender: FDA-Public Use
  Company Number: US-PFIZER INC-2020353177

PATIENT
  Age: 75 Year
  Sex: Female
  Weight: 72.57 kg

DRUGS (1)
  1. PREGABALIN. [Suspect]
     Active Substance: PREGABALIN
     Indication: POST HERPETIC NEURALGIA
     Dosage: 300 MG, 3X/DAY
     Route: 048

REACTIONS (12)
  - Prescribed overdose [Unknown]
  - Movement disorder [Unknown]
  - Diarrhoea [Unknown]
  - Chills [Unknown]
  - Pyrexia [Unknown]
  - Illness [Unknown]
  - Paralysis [Unknown]
  - Muscle spasms [Unknown]
  - Drug hypersensitivity [Unknown]
  - Abdominal pain upper [Unknown]
  - Asthenia [Unknown]
  - Cold sweat [Unknown]

NARRATIVE: CASE EVENT DATE: 20200910
